FAERS Safety Report 18305894 (Version 1)
Quarter: 2020Q3

REPORT INFORMATION
  Report Type: Spontaneous
  Country: US (occurrence: US)
  Receive Date: 20200923
  Receipt Date: 20200923
  Transmission Date: 20201103
  Serious: No
  Sender: FDA-Public Use
  Company Number: US-BIOMARINAP-US-2020-132405

PATIENT

DRUGS (1)
  1. KUVAN [Suspect]
     Active Substance: SAPROPTERIN DIHYDROCHLORIDE
     Indication: PHENYLKETONURIA
     Dosage: 420 MILLIGRAM
     Route: 065
     Dates: start: 2012

REACTIONS (3)
  - Gastrooesophageal reflux disease [Unknown]
  - Rash [Unknown]
  - Nausea [Unknown]

NARRATIVE: CASE EVENT DATE: 201910
